FAERS Safety Report 13022446 (Version 1)
Quarter: 2016Q4

REPORT INFORMATION
  Report Type: Spontaneous
  Country: US (occurrence: US)
  Receive Date: 20161213
  Receipt Date: 20161213
  Transmission Date: 20170207
  Serious: No
  Sender: FDA-Public Use
  Company Number: US-ADAPT PHARMA INC-2016ADP00119

PATIENT
  Sex: Male

DRUGS (2)
  1. NALOXONE HYDROCHLORIDE. [Suspect]
     Active Substance: NALOXONE HYDROCHLORIDE
     Dosage: UNK,UNK
     Route: 065
  2. BENZODIAZEPINES [Suspect]
     Active Substance: BENZODIAZEPINE
     Dosage: UNK, UNK
     Route: 065

REACTIONS (1)
  - Drug screen false positive [Unknown]
